FAERS Safety Report 17020776 (Version 1)
Quarter: 2019Q4

REPORT INFORMATION
  Report Type: Spontaneous
  Country: US (occurrence: US)
  Receive Date: 20191111
  Receipt Date: 20191111
  Transmission Date: 20200122
  Serious: No
  Sender: FDA-Public Use
  Company Number: None

PATIENT
  Age: 52 Year
  Sex: Male
  Weight: 57.7 kg

DRUGS (7)
  1. METRONIDAZOLE IV [Concomitant]
     Dates: start: 20191104, end: 20191105
  2. ABELCET [Suspect]
     Active Substance: AMPHOTERICIN B\DIMYRISTOYLPHOSPHATIDYLCHOLINE, DL-\DIMYRISTOYLPHOSPHATIDYLGLYCEROL, DL-
     Indication: SEPSIS
     Route: 042
     Dates: start: 20191105, end: 20191105
  3. PANTOPRAZOLE INJ [Concomitant]
     Dates: start: 20191104, end: 20191105
  4. VANCOMYCIN IV [Concomitant]
     Active Substance: VANCOMYCIN HYDROCHLORIDE
     Dates: start: 20191104, end: 20191105
  5. IPRATROPIUM NEB [Concomitant]
     Dates: start: 20191104, end: 20191106
  6. ALBUTEROL NEB [Concomitant]
     Active Substance: ALBUTEROL
     Dates: start: 20191104, end: 20191106
  7. CARVEDILOL TABLET [Concomitant]
     Active Substance: CARVEDILOL
     Dates: start: 20191104, end: 20191105

REACTIONS (1)
  - Respiratory disorder [None]

NARRATIVE: CASE EVENT DATE: 20191105
